FAERS Safety Report 8578474-4 (Version None)
Quarter: 2012Q3

REPORT INFORMATION
  Report Type: 
  Country: None (occurrence: None)
  Receive Date: 20120726
  Receipt Date: 20120628
  Transmission Date: 20120928
  Serious: Yes (Other)
  Sender: FDA-Public Use
  Company Number: 1336161

PATIENT
  Age: 42 Year
  Sex: Female

DRUGS (10)
  1. OPIOIDS [Concomitant]
  2. KETAMINE HCL [Concomitant]
  3. PROPOFOL [Concomitant]
  4. REMIFENTANIL [Concomitant]
  5. METHADONE HYDROCHLORIDE [Concomitant]
  6. VECURONIUM BROMIDE [Suspect]
     Indication: NEUROMUSCULAR BLOCKADE
     Dosage: 10;2MG, X 1,X2, INTRAVENOUS
     Route: 042
     Dates: start: 20120628, end: 20120628
  7. DILAUDID [Concomitant]
  8. LYRICA [Concomitant]
  9. QUELICIN [Concomitant]
  10. VALIUM [Concomitant]

REACTIONS (3)
  - TETANY [None]
  - MUSCLE TWITCHING [None]
  - RESPIRATORY DISORDER [None]
